FAERS Safety Report 17377333 (Version 2)
Quarter: 2020Q1

REPORT INFORMATION
  Report Type: Spontaneous
  Country: US (occurrence: US)
  Receive Date: 20200206
  Receipt Date: 20200326
  Transmission Date: 20200409
  Serious: No
  Sender: FDA-Public Use
  Company Number: US-PFIZER INC-2019452473

PATIENT
  Age: 44 Year
  Sex: Male

DRUGS (2)
  1. LYRICA [Suspect]
     Active Substance: PREGABALIN
     Dosage: 1000 MG, DAILY (1 EVERY MORNING, 2 EVERY AFTERNOON + 2 EVERY NIGHT AT BEDTIME)
     Route: 048
  2. LYRICA [Suspect]
     Active Substance: PREGABALIN
     Dosage: 800 MG, DAILY [1 Q AM (EVERY MORNING), 1 Q (EVERY) AFTERNOON, + 2 Q HS (EVERY NIGHT AT BEDTIME)]
     Route: 048

REACTIONS (2)
  - Pain in extremity [Unknown]
  - Prescribed overdose [Unknown]
